FAERS Safety Report 10472647 (Version 2)
Quarter: 2014Q4

REPORT INFORMATION
  Report Type: Not Available
  Country: ES (occurrence: ES)
  Receive Date: 20140924
  Receipt Date: 20141010
  Transmission Date: 20150528
  Serious: Yes (Death, Other)
  Sender: FDA-Public Use
  Company Number: ES-CELGENE-144-21660-14091920

PATIENT

DRUGS (3)
  1. ABRAXANE [Suspect]
     Active Substance: PACLITAXEL
     Route: 041
  2. GEMCITABINE [Concomitant]
     Active Substance: GEMCITABINE\GEMCITABINE HYDROCHLORIDE
     Indication: PANCREATIC CARCINOMA
     Route: 041
  3. ABRAXANE [Suspect]
     Active Substance: PACLITAXEL
     Indication: PANCREATIC CARCINOMA
     Route: 041

REACTIONS (12)
  - Leukopenia [Unknown]
  - Enteritis [Unknown]
  - Anaemia [Unknown]
  - Hepatic failure [Unknown]
  - Constipation [Unknown]
  - Febrile neutropenia [Unknown]
  - Fatigue [Unknown]
  - Abdominal infection [Unknown]
  - Abdominal pain [Unknown]
  - Cholangitis [Unknown]
  - Death [Fatal]
  - Neutropenia [Unknown]
